FAERS Safety Report 5491738-6 (Version None)
Quarter: 2007Q4

REPORT INFORMATION
  Report Type: 
  Country: None (occurrence: None)
  Receive Date: 20071019
  Receipt Date: 20071019
  Transmission Date: 20080405
  Serious: Yes (Life-Threatening, Hospitalization)
  Sender: FDA-Public Use
  Company Number: None

PATIENT
  Sex: Female
  Weight: 82.5547 kg

DRUGS (2)
  1. ENBREL [Suspect]
     Indication: ANKYLOSING SPONDYLITIS
     Dosage: 50 MG WEEKLY SQ
     Route: 058
     Dates: start: 20050622, end: 20070323
  2. HUMIRA [Suspect]
     Dosage: 40 MG WEEKLY SQ
     Route: 058
     Dates: start: 20070323, end: 20070620

REACTIONS (1)
  - SQUAMOUS CELL CARCINOMA [None]
